FAERS Safety Report 5970265-3 (Version None)
Quarter: 2008Q4

REPORT INFORMATION
  Report Type: 
  Country: None (occurrence: None)
  Receive Date: 20081126
  Receipt Date: 20081013
  Transmission Date: 20090506
  Serious: No
  Sender: FDA-Public Use
  Company Number: US-ABBOTT-08P-163-0481472-00

PATIENT
  Sex: Female
  Weight: 68.1 kg

DRUGS (5)
  1. SIMCOR [Suspect]
     Indication: BLOOD CHOLESTEROL INCREASED
     Dosage: 500/20 MILLIGRAMS
     Route: 048
     Dates: start: 20080601, end: 20080701
  2. SIMCOR [Suspect]
     Dosage: 500/20 MILLIGRAMS
     Route: 048
     Dates: start: 20080917
  3. FISH OIL [Concomitant]
     Indication: BLOOD CHOLESTEROL INCREASED
     Route: 048
  4. JANUMET [Concomitant]
     Indication: DIABETES MELLITUS
     Dosage: 50/500 MILLIGRAMS
     Route: 048
     Dates: start: 20080917
  5. TOLTERODINE TARTRATE [Concomitant]
     Indication: HYPERTONIC BLADDER
     Dosage: NOT REPORTED
     Route: 048
     Dates: start: 20041004

REACTIONS (3)
  - BLADDER CYST [None]
  - BLOOD GLUCOSE INCREASED [None]
  - BLOOD URINE PRESENT [None]
